FAERS Safety Report 18041755 (Version 1)
Quarter: 2020Q3

REPORT INFORMATION
  Report Type: Spontaneous
  Country: ES (occurrence: ES)
  Receive Date: 20200720
  Receipt Date: 20200720
  Transmission Date: 20201103
  Serious: Yes (Other)
  Sender: FDA-Public Use
  Company Number: ES-TEVA-2020-ES-1801555

PATIENT
  Age: 40 Year
  Sex: Male
  Weight: 93.4 kg

DRUGS (5)
  1. DEXKETOPROFENO (7312A) [Suspect]
     Active Substance: DEXKETOPROFEN
     Indication: ANALGESIC THERAPY
     Dosage: 100 MILLIGRAM DAILY;
     Route: 030
     Dates: start: 20191227, end: 20191229
  2. PARACETAMOL (12A) [Suspect]
     Active Substance: ACETAMINOPHEN
     Indication: ANALGESIC THERAPY
     Dosage: 3 GRAM DAILY;
     Route: 048
     Dates: start: 20191228
  3. OLANZAPINA (2770A) [Suspect]
     Active Substance: OLANZAPINE
     Dosage: 10 MILLIGRAM DAILY;
     Route: 048
     Dates: start: 20191228
  4. GABAPENTINA (2641A) [Suspect]
     Active Substance: GABAPENTIN
     Dosage: 1200 MILLIGRAM DAILY;
     Route: 048
     Dates: start: 20191227
  5. TRANXILIUM 50 MG COMPRIMIDOS RECUBIERTOS CON PELICULA , 20 COMPRIMIDOS [Suspect]
     Active Substance: CLORAZEPATE DIPOTASSIUM
     Dosage: 150 MILLIGRAM DAILY;
     Route: 048
     Dates: start: 20191227

REACTIONS (1)
  - Hepatocellular injury [Recovered/Resolved]

NARRATIVE: CASE EVENT DATE: 20200103
